FAERS Safety Report 12167896 (Version 3)
Quarter: 2016Q1

REPORT INFORMATION
  Report Type: Spontaneous
  Country: CA (occurrence: CA)
  Receive Date: 20160310
  Receipt Date: 20160317
  Transmission Date: 20160526
  Serious: Yes (Other)
  Sender: FDA-Public Use
  Company Number: CHPA2016CA002804

PATIENT
  Age: 39 Year
  Sex: Female

DRUGS (2)
  1. THRIVE 2 MG [Suspect]
     Active Substance: NICOTINE
     Dosage: 3 TO 4 PIECES
     Route: 048
     Dates: start: 20160225
  2. THRIVE 2 MG [Suspect]
     Active Substance: NICOTINE
     Indication: SMOKING CESSATION THERAPY
     Dosage: UNK
     Route: 048

REACTIONS (1)
  - Drug dependence [Not Recovered/Not Resolved]

NARRATIVE: CASE EVENT DATE: 2013
